FAERS Safety Report 9686242 (Version 3)
Quarter: 2013Q4

REPORT INFORMATION
  Report Type: Report from Study
  Country: CA (occurrence: CA)
  Receive Date: 20131113
  Receipt Date: 20131219
  Transmission Date: 20140711
  Serious: Yes (Hospitalization, Other)
  Sender: FDA-Public Use
  Company Number: CA-JNJFOC-20131103207

PATIENT
  Age: 67 Year
  Sex: Male

DRUGS (9)
  1. REMICADE [Suspect]
     Indication: RHEUMATOID ARTHRITIS
     Route: 042
     Dates: start: 20070214
  2. ACIDE FOLIQUE [Concomitant]
     Indication: PROPHYLAXIS
     Route: 048
     Dates: start: 20050101
  3. LYRICA [Concomitant]
     Indication: ARTHRALGIA
     Dosage: ^PEN^
     Route: 048
     Dates: start: 20080410
  4. TRAMACET [Concomitant]
     Dosage: DOSE: ^2 CO^
     Route: 048
     Dates: start: 20071216
  5. ACETYLSALICYLIC ACID [Concomitant]
     Indication: PROPHYLAXIS
     Route: 048
     Dates: start: 20120620
  6. EZETROL [Concomitant]
     Indication: BLOOD CHOLESTEROL
     Route: 048
     Dates: start: 20120120
  7. MONOCOR [Concomitant]
     Indication: HYPERTENSION
     Route: 048
     Dates: start: 20130606
  8. METHOTREXATE [Concomitant]
     Indication: PSORIATIC ARTHROPATHY
     Route: 058
     Dates: start: 20050501
  9. AVAPRO [Concomitant]
     Indication: HYPERTENSION
     Route: 048
     Dates: start: 20121214

REACTIONS (2)
  - Coronary artery disease [Recovered/Resolved]
  - Vascular stenosis [Unknown]
